FAERS Safety Report 21657755 (Version 1)
Quarter: 2022Q4

REPORT INFORMATION
  Report Type: Spontaneous
  Country: FR (occurrence: FR)
  Receive Date: 20221129
  Receipt Date: 20221129
  Transmission Date: 20230113
  Serious: Yes (Hospitalization)
  Sender: FDA-Public Use
  Company Number: None

PATIENT
  Age: 68 Year
  Sex: Female

DRUGS (10)
  1. BUSPIRONE [Suspect]
     Active Substance: BUSPIRONE HYDROCHLORIDE
     Indication: Product used for unknown indication
     Dosage: 10 MILLIGRAM, BID, MORNING AND NOON
     Route: 048
     Dates: start: 20220916
  2. MIRTAZAPINE [Suspect]
     Active Substance: MIRTAZAPINE
     Indication: Depression
     Dosage: 15 MILLIGRAM, QD, EVENING
     Route: 048
  3. HYDROXYZINE [Suspect]
     Active Substance: HYDROXYZINE HYDROCHLORIDE
     Indication: Product used for unknown indication
     Dosage: 25 MILLIGRAM, QD, AT BEDTIME
     Route: 048
  4. CLOMIPRAMINE [Suspect]
     Active Substance: CLOMIPRAMINE
     Indication: Depression
     Dosage: UNK, 50 - 25 - 0
     Route: 048
  5. LORAZEPAM [Suspect]
     Active Substance: LORAZEPAM
     Indication: Depression
     Dosage: 25 MILLIGRAM, QD, AT BEDTIME
     Route: 048
  6. MELATONIN [Suspect]
     Active Substance: MELATONIN
     Indication: Insomnia
     Dosage: 5 MILLIGRAM, QD, BEDTIME
     Route: 048
  7. ASTEMIZOLE [Suspect]
     Active Substance: ASTEMIZOLE
     Indication: Depression
     Dosage: 1 MILLIGRAM, QD, 1 MG AT BEDTIME
     Route: 048
  8. PRAZEPAM [Suspect]
     Active Substance: PRAZEPAM
     Indication: Depression
     Dosage: 5 MILLIGRAM, 5 MG X 3
     Route: 048
  9. TRIMEPRAZINE [Suspect]
     Active Substance: TRIMEPRAZINE
     Indication: Depression
     Dosage: 20 MILLIGRAM, QD, AT BEDTIME
     Route: 048
  10. LORMETAZEPAM [Suspect]
     Active Substance: LORMETAZEPAM
     Indication: Depression
     Dosage: 4 MILLIGRAM, QD, AT BEDTIME
     Route: 048

REACTIONS (3)
  - Intentional overdose [Recovering/Resolving]
  - Coma [Unknown]
  - Hepatocellular injury [Unknown]

NARRATIVE: CASE EVENT DATE: 20220916
